FAERS Safety Report 5388502-5 (Version None)
Quarter: 2007Q3

REPORT INFORMATION
  Report Type: 
  Country: None (occurrence: None)
  Receive Date: 20070716
  Receipt Date: 20070704
  Transmission Date: 20080115
  Serious: Yes (Hospitalization)
  Sender: FDA-Public Use
  Company Number: GB-PFIZER INC-2006089347

PATIENT
  Sex: Male
  Weight: 132.8 kg

DRUGS (14)
  1. SU-011,248 [Suspect]
     Indication: RENAL CELL CARCINOMA STAGE UNSPECIFIED
     Route: 048
     Dates: start: 20060523, end: 20060717
  2. DRUG, UNSPECIFIED [Concomitant]
     Dosage: TEXT:UNKNOWN-FREQ:UNKNOWN
     Route: 065
  3. METFORMIN HCL [Concomitant]
     Route: 048
  4. INSULIN [Concomitant]
     Route: 058
  5. ASPIRIN [Concomitant]
     Route: 048
  6. SUPRALIP [Concomitant]
     Route: 048
  7. SIMVASTATIN [Concomitant]
     Route: 048
  8. PARACETAMOL [Concomitant]
     Route: 048
  9. IBUPROFEN [Concomitant]
     Route: 048
  10. GLUCOSAMINE SULFATE [Concomitant]
     Route: 048
  11. GARLIC [Concomitant]
     Route: 048
  12. GEROVITAL [Concomitant]
     Route: 048
  13. OXYCODONE HCL [Concomitant]
     Route: 048
     Dates: start: 20060703
  14. DEXAMETHASONE 0.5MG TAB [Concomitant]
     Route: 048
     Dates: start: 20060703, end: 20060731

REACTIONS (2)
  - CONFUSIONAL STATE [None]
  - PYREXIA [None]
